FAERS Safety Report 18013705 (Version 1)
Quarter: 2020Q3

REPORT INFORMATION
  Report Type: Spontaneous
  Country: US (occurrence: US)
  Receive Date: 20200711
  Receipt Date: 20200711
  Transmission Date: 20201103
  Serious: Yes (Death, Hospitalization)
  Sender: FDA-Public Use
  Company Number: None

PATIENT
  Age: 63 Year
  Sex: Female
  Weight: 65.4 kg

DRUGS (2)
  1. GEMCITABINE HYDROCHLORIDE. [Suspect]
     Active Substance: GEMCITABINE HYDROCHLORIDE
     Dates: end: 20200625
  2. CISPLATIN. [Suspect]
     Active Substance: CISPLATIN
     Dates: end: 20200604

REACTIONS (12)
  - Hyperhidrosis [None]
  - Lactic acidosis [None]
  - Renal failure [None]
  - Syncope [None]
  - Abdominal tenderness [None]
  - Metastatic neoplasm [None]
  - Encephalopathy [None]
  - Hypoglycaemia [None]
  - Metabolic acidosis [None]
  - Hypotension [None]
  - Fall [None]
  - Loss of consciousness [None]

NARRATIVE: CASE EVENT DATE: 20200706
